FAERS Safety Report 13454587 (Version 2)
Quarter: 2017Q3

REPORT INFORMATION
  Report Type: Spontaneous
  Country: US (occurrence: US)
  Receive Date: 20170418
  Receipt Date: 20170704
  Transmission Date: 20171127
  Serious: No
  Sender: FDA-Public Use
  Company Number: US-BRISTOL-MYERS SQUIBB COMPANY-BMS-2017-032753

PATIENT
  Sex: Female
  Weight: 62.14 kg

DRUGS (1)
  1. YERVOY [Suspect]
     Active Substance: IPILIMUMAB
     Indication: MALIGNANT MELANOMA
     Dosage: 665 MG, UNK
     Route: 042
     Dates: start: 201701

REACTIONS (3)
  - Diarrhoea [Unknown]
  - Rash [Unknown]
  - Gastrointestinal disorder [Unknown]
